FAERS Safety Report 10388244 (Version 3)
Quarter: 2014Q4

REPORT INFORMATION
  Report Type: Report from Study
  Country: US (occurrence: US)
  Receive Date: 20140815
  Receipt Date: 20141027
  Transmission Date: 20150528
  Serious: Yes (Hospitalization, Other)
  Sender: FDA-Public Use
  Company Number: US-009507513-1102USA02419

PATIENT
  Age: 62 Year
  Sex: Male
  Weight: 108.86 kg

DRUGS (7)
  1. FUROSEMIDE. [Suspect]
     Active Substance: FUROSEMIDE
     Dosage: TOTAL DAILY DOSE 160 MG
     Route: 048
     Dates: start: 20110909
  2. CARVEDILOL. [Concomitant]
     Active Substance: CARVEDILOL
     Dosage: TOTAL DAILY DOSE 20 MG
     Route: 048
     Dates: start: 20090611
  3. DIGOXIN. [Concomitant]
     Active Substance: DIGOXIN
     Dosage: TOTAL DAILY DOSE 0.125 MG
     Route: 048
     Dates: start: 20090608
  4. EZETIMIBE AND SIMVASTATIN [Suspect]
     Active Substance: EZETIMIBE\SIMVASTATIN
     Indication: ACUTE CORONARY SYNDROME
     Dosage: UNK
     Route: 048
     Dates: start: 20070517, end: 20100909
  5. PLAVIX [Concomitant]
     Active Substance: CLOPIDOGREL BISULFATE
     Dosage: TOTAL DAILY DOSE 75 MG
     Route: 048
     Dates: start: 20070512
  6. ASPIRIN. [Concomitant]
     Active Substance: ASPIRIN
     Dosage: TOTAL DAILY DOSE 81 MG
     Route: 048
     Dates: start: 20090611
  7. FUROSEMIDE. [Concomitant]
     Active Substance: FUROSEMIDE
     Dosage: TOTAL DAILY DOSE 40 MG
     Route: 048
     Dates: start: 20070511, end: 20110909

REACTIONS (1)
  - Pleural effusion [Recovered/Resolved]

NARRATIVE: CASE EVENT DATE: 20100909
